FAERS Safety Report 8495276-8 (Version None)
Quarter: 2012Q3

REPORT INFORMATION
  Report Type: 
  Country: None (occurrence: None)
  Receive Date: 20120709
  Receipt Date: 20120702
  Transmission Date: 20120928
  Serious: Yes (Hospitalization)
  Sender: FDA-Public Use
  Company Number: US-BAYER-2012-058057

PATIENT
  Age: 37 Year
  Sex: Female

DRUGS (17)
  1. YAZ [Suspect]
     Dosage: UNK
     Dates: start: 20090203, end: 20090904
  2. ALPRAZOLAM [Concomitant]
     Dosage: 1 MG, HS
     Route: 048
     Dates: start: 20090813
  3. CLARAVIS [Concomitant]
     Dosage: 40 MG, BID
     Route: 048
     Dates: start: 20090813
  4. BUTALBITAL ACETAMINOPHEN AND CAFFEINE [Concomitant]
     Indication: MIGRAINE
     Dosage: 50-325-40-30 MG/ 1 CAPSULE AS NEEDED
     Dates: start: 20090813
  5. IMITREX [Concomitant]
     Dosage: 100 MG/MAXIMUM 200 MG /DAY
     Route: 048
  6. RETIN-A MICRO [Concomitant]
     Dosage: UNK UNK, HS
     Route: 061
     Dates: start: 20090813
  7. TRAMADOL HCL [Concomitant]
     Dosage: 50 MG, BID
     Route: 048
     Dates: start: 20090813
  8. ZOLPIDEM TARTRATE [Concomitant]
     Dosage: 10 MG, HS
     Route: 048
     Dates: start: 20090813
  9. COMBIVENT [Concomitant]
     Dosage: 2 PUFF(S), TID
     Route: 048
     Dates: start: 20090813
  10. AMBIEN CR [Concomitant]
     Indication: SLEEP DISORDER
     Dosage: 12.5 MG, PRN
     Route: 048
     Dates: start: 20090813
  11. LEVOTHYROXINE SODIUM [Concomitant]
     Dosage: 100 ?G, UNK
  12. BUTALBITAL ACETAMINOPHEN AND CAFFEINE [Concomitant]
     Indication: HEADACHE
  13. LOCOID [Concomitant]
     Dosage: 0.1%/APPLY SPARINGLY BID FOR 1-2 WEEKS AS NEEDED
     Route: 061
     Dates: start: 20090813
  14. PANTOPRAZOLE SODIUM [Concomitant]
     Dosage: 40 MG, QD
     Route: 048
     Dates: start: 20081218, end: 20090813
  15. CYMBALTA [Concomitant]
     Dosage: 30 MG, QD
     Route: 048
     Dates: start: 20090813
  16. ACCUTANE [Concomitant]
     Dosage: 30 MG, BID
     Route: 048
     Dates: start: 20090203
  17. SEROQUEL [Concomitant]
     Dosage: 50 MG, BID
     Dates: start: 20080528, end: 20080711

REACTIONS (5)
  - INJURY [None]
  - PULMONARY EMBOLISM [None]
  - PAIN [None]
  - ANHEDONIA [None]
  - EMOTIONAL DISTRESS [None]
